FAERS Safety Report 7152431-7 (Version None)
Quarter: 2010Q4

REPORT INFORMATION
  Report Type: 
  Country: None (occurrence: None)
  Receive Date: 20101124
  Receipt Date: 20101115
  Transmission Date: 20110411
  Serious: Yes (Death, Other)
  Sender: FDA-Public Use
  Company Number: 2010AP002364

PATIENT
  Age: 5 Year
  Sex: Female

DRUGS (3)
  1. CLARITHROMYCIN [Suspect]
     Indication: EAR INFECTION
  2. VALPROIC ACID [Suspect]
     Indication: CONVULSION
     Dosage: 250 MG; BID
  3. HYDROCODONE BITARTRATE [Suspect]
     Indication: NASOPHARYNGITIS
     Dosage: 30 MG

REACTIONS (8)
  - CARDIAC ARREST [None]
  - DIZZINESS [None]
  - DRUG INTERACTION [None]
  - LETHARGY [None]
  - NASOPHARYNGITIS [None]
  - OVERDOSE [None]
  - SNORING [None]
  - UNRESPONSIVE TO STIMULI [None]
